FAERS Safety Report 4617763-2 (Version None)
Quarter: 2005Q1

REPORT INFORMATION
  Report Type: 
  Country: None (occurrence: None)
  Receive Date: 20050322
  Receipt Date: 20050309
  Transmission Date: 20050727
  Serious: Yes (Death, Hospitalization)
  Sender: FDA-Public Use
  Company Number: 2005RL000028

PATIENT
  Age: 55 Year
  Sex: Female

DRUGS (7)
  1. NIZATIDINE [Suspect]
     Indication: DUODENAL ULCER
     Dosage: 150 MG; QD
     Dates: start: 20010101, end: 20010101
  2. PROPYLTHIOURACIL [Suspect]
     Indication: BASEDOW'S DISEASE
     Dates: end: 20010101
  3. AMLODIPINE BESYLATE [Suspect]
     Dates: end: 20010101
  4. VOGLIBOSE (VOGLIBOSE) [Suspect]
     Dates: end: 20010101
  5. MECOBALAMIN (MECOBALAMIN) [Suspect]
     Dates: end: 20010101
  6. ETIZOLAM (ETIZOLAM) [Suspect]
     Dates: end: 20010101
  7. NEUTRAL INSULIN INJECTION [Concomitant]

REACTIONS (17)
  - ABDOMINAL TENDERNESS [None]
  - APLASTIC ANAEMIA [None]
  - BLOOD DISORDER [None]
  - BONE MARROW DEPRESSION [None]
  - CREPITATIONS [None]
  - DIARRHOEA [None]
  - DRUG HYPERSENSITIVITY [None]
  - EMBOLISM [None]
  - FUNGAL INFECTION [None]
  - HYPOREFLEXIA [None]
  - MUCORMYCOSIS [None]
  - PALLOR [None]
  - PANCYTOPENIA [None]
  - PNEUMONIA [None]
  - SENSORY LOSS [None]
  - SEPTIC SHOCK [None]
  - UPPER RESPIRATORY TRACT INFECTION [None]
